FAERS Safety Report 9363624 (Version 4)
Quarter: 2013Q3

REPORT INFORMATION
  Report Type: Spontaneous
  Country: US (occurrence: None)
  Receive Date: 20130404
  Receipt Date: 20130716
  Transmission Date: 20140515
  Serious: Yes (Death, Life-Threatening, Hospitalization)
  Sender: FDA-Public Use
  Company Number: 2013US001041

PATIENT
  Age: 54 Year
  Sex: Female
  Weight: 61.7 kg

DRUGS (24)
  1. CLARITIN (LORATADINE) [Concomitant]
  2. ATIVAN (LORAZEPAM) [Concomitant]
  3. MULTIVITAMIN (VITAMINS NOS) [Concomitant]
  4. MYCOSTATIN (NYSTATIN) [Concomitant]
  5. ROXICODONE (OXYCODONE HYDROCHLORIDE) [Concomitant]
  6. MIRALAX [Concomitant]
  7. KLOR-CON (POTASSIUM CHLORIDE) [Concomitant]
  8. SENOKOT (SENNA ALEXANDRINA FRUIT) [Concomitant]
  9. ZOLOFT (SERTRALINE HYDROCHLORIDE) [Concomitant]
  10. BACTRIM DS (SULFAMETHOXAZOLE, TRIMETHOPRIM) [Concomitant]
  11. VALCYTE (VALGANCICLOVIR HYDROCHLORIDE) [Concomitant]
  12. PONATINIB (AP24534) TABLET [Suspect]
     Indication: ACUTE LYMPHOCYTIC LEUKAEMIA
     Route: 048
     Dates: start: 20121019, end: 20121025
  13. ZYLOPRIN (ALLOPURINOL) [Concomitant]
  14. NORVASC (AMLODIPINE BESILATE) [Concomitant]
  15. VITAMIN C [Concomitant]
  16. CIPROFLOXACIN (CIPROFLOXACIN HYDROCHLORIDE) [Concomitant]
  17. DECADRON (DEXAMETHASONE ACETATE) [Concomitant]
  18. COLACE [Concomitant]
  19. DIFLUCAN (FLUCONAZOLE) [Concomitant]
  20. FOLVITE (FOLIC ACID) [Concomitant]
  21. NEURONTIN (GABAPENTIN) [Concomitant]
  22. DILAUDID (HYDROMORPHONE HYDROCHLORIDE) INJECTION [Concomitant]
  23. LANTUS (INSULIN GLARGINE) [Concomitant]
  24. HUMALOG (INSULIN LISPRO) [Concomitant]

REACTIONS (14)
  - Aortic thrombosis [None]
  - Renal embolism [None]
  - Bacterial sepsis [None]
  - Decubitus ulcer [None]
  - Asthenia [None]
  - Failure to thrive [None]
  - Hypotension [None]
  - Pleural effusion [None]
  - Ascites [None]
  - Urosepsis [None]
  - Klebsiella sepsis [None]
  - Renal infarct [None]
  - Splenic infarction [None]
  - Disease recurrence [None]
